FAERS Safety Report 15897220 (Version 2)
Quarter: 2019Q1

REPORT INFORMATION
  Report Type: Report from Study
  Country: JP (occurrence: JP)
  Receive Date: 20190131
  Receipt Date: 20190213
  Transmission Date: 20190417
  Serious: Yes (Hospitalization, Other)
  Sender: FDA-Public Use
  Company Number: JP-BRISTOL-MYERS SQUIBB COMPANY-BMS-2018-065295

PATIENT
  Age: 69 Year
  Sex: Male
  Weight: 60 kg

DRUGS (4)
  1. NIVOLUMAB [Suspect]
     Active Substance: NIVOLUMAB
     Indication: NON-SMALL CELL LUNG CANCER
     Dosage: 360 MG, UNK
     Route: 042
     Dates: start: 20180608
  2. CARBOPLATIN. [Suspect]
     Active Substance: CARBOPLATIN
     Indication: NON-SMALL CELL LUNG CANCER
     Dosage: 900 MG, UNK
     Route: 065
     Dates: start: 20180608
  3. PACLITAXEL. [Suspect]
     Active Substance: PACLITAXEL
     Indication: NON-SMALL CELL LUNG CANCER
     Dosage: 367.5 MG, UNK
     Route: 065
     Dates: start: 20180608
  4. BEVACIZUMAB. [Suspect]
     Active Substance: BEVACIZUMAB
     Indication: NON-SMALL CELL LUNG CANCER
     Dosage: 15 MG/KG, UNK
     Route: 065
     Dates: start: 20180608

REACTIONS (5)
  - Respiratory failure [Unknown]
  - Epistaxis [Recovered/Resolved]
  - Decreased appetite [Recovered/Resolved]
  - Pneumonia bacterial [Recovering/Resolving]
  - Infectious pleural effusion [Not Recovered/Not Resolved]

NARRATIVE: CASE EVENT DATE: 20180706
